FAERS Safety Report 6239710-2 (Version None)
Quarter: 2009Q2

REPORT INFORMATION
  Report Type: 
  Country: None (occurrence: None)
  Receive Date: 20090619
  Receipt Date: 20090615
  Transmission Date: 20091009
  Serious: Yes (Disabling)
  Sender: FDA-Public Use
  Company Number: CERZ-1000596

PATIENT
  Age: 55 Year
  Sex: Female
  Weight: 50 kg

DRUGS (2)
  1. CEREZYME [Suspect]
     Indication: GAUCHER'S DISEASE
     Dosage: INTRAVENOUS
     Route: 042
     Dates: start: 19951223
  2. SODIUM BIPHOSPHATE (SODIUM PHOSPHATE MONOBASIC (ANHYDRATE)) [Concomitant]

REACTIONS (2)
  - PAIN [None]
  - RIB FRACTURE [None]
